FAERS Safety Report 12345762 (Version 2)
Quarter: 2016Q4

REPORT INFORMATION
  Report Type: Spontaneous
  Country: US (occurrence: US)
  Receive Date: 20160509
  Receipt Date: 20161006
  Transmission Date: 20170207
  Serious: No
  Sender: FDA-Public Use
  Company Number: US-BRISTOL-MYERS SQUIBB COMPANY-BMS-2016-034062

PATIENT
  Sex: Male

DRUGS (1)
  1. KENALOG-40 [Suspect]
     Active Substance: TRIAMCINOLONE ACETONIDE
     Indication: RASH
     Route: 065

REACTIONS (4)
  - Tendonitis [Unknown]
  - Exostosis [Unknown]
  - Intervertebral disc protrusion [Unknown]
  - Sciatica [Not Recovered/Not Resolved]
